FAERS Safety Report 22163947 (Version 1)
Quarter: 2023Q2

REPORT INFORMATION
  Report Type: Spontaneous
  Country: US (occurrence: US)
  Receive Date: 20230402
  Receipt Date: 20230402
  Transmission Date: 20230722
  Serious: No
  Sender: FDA-Public Use
  Company Number: US-drreddys-SPO/USA/23/0161810

PATIENT
  Age: 14 Year

DRUGS (1)
  1. ZENATANE [Suspect]
     Active Substance: ISOTRETINOIN
     Indication: Product used for unknown indication
     Dosage: RMA ISSUE DATE: 02 NOVEMBER 2022 12:15:16 PM, 05 DECEMBER 2022 11:49:41 AM, 02 JANUARY 2023 09:24:32

REACTIONS (1)
  - Adverse drug reaction [Unknown]
